FAERS Safety Report 7588035-1 (Version None)
Quarter: 2011Q3

REPORT INFORMATION
  Report Type: 
  Country: None (occurrence: None)
  Receive Date: 20110705
  Receipt Date: 20110627
  Transmission Date: 20111222
  Serious: No
  Sender: FDA-Public Use
  Company Number: US-PFIZER INC-2011143522

PATIENT
  Sex: Female

DRUGS (3)
  1. TOPROL-XL [Suspect]
  2. CLINDAMYCIN HCL [Suspect]
     Dosage: UNK
  3. PREMARIN [Suspect]
     Dosage: UNK

REACTIONS (5)
  - DYSPNOEA [None]
  - PALPITATIONS [None]
  - NAUSEA [None]
  - DIARRHOEA [None]
  - ABDOMINAL PAIN [None]
